FAERS Safety Report 17639239 (Version 1)
Quarter: 2020Q2

REPORT INFORMATION
  Report Type: Spontaneous
  Country: SE (occurrence: SE)
  Receive Date: 20200407
  Receipt Date: 20200407
  Transmission Date: 20200713
  Serious: Yes (Hospitalization)
  Sender: FDA-Public Use
  Company Number: SE-TEVA-2020-SE-1219878

PATIENT
  Age: 69 Year
  Sex: Male

DRUGS (1)
  1. OXASCAND [Suspect]
     Active Substance: OXAZEPAM
     Dosage: 16 ST 5 MG OXASCAND
     Route: 065
     Dates: start: 20200314, end: 20200314

REACTIONS (5)
  - Lethargy [Recovering/Resolving]
  - Intentional self-injury [Recovering/Resolving]
  - Intentional overdose [Recovering/Resolving]
  - Toxicity to various agents [Recovering/Resolving]
  - Suicidal ideation [Recovering/Resolving]

NARRATIVE: CASE EVENT DATE: 20200314
